FAERS Safety Report 10241808 (Version 1)
Quarter: 2014Q2

REPORT INFORMATION
  Report Type: Spontaneous
  Country: US (occurrence: None)
  Receive Date: 20140612
  Receipt Date: 20140612
  Transmission Date: 20141212
  Serious: Yes (Other)
  Sender: FDA-Public Use
  Company Number: 2014SA073147

PATIENT
  Sex: Female

DRUGS (1)
  1. GOLD BOND WITH ALOE [Suspect]
     Indication: PRODUCT USED FOR UNKNOWN INDICATION
     Dates: start: 20140521

REACTIONS (6)
  - Application site burn [None]
  - Application site rash [None]
  - Rash [None]
  - Application site exfoliation [None]
  - Burns third degree [None]
  - Application site vesicles [None]
